FAERS Safety Report 4899533-3 (Version None)
Quarter: 2006Q1

REPORT INFORMATION
  Report Type: 
  Country: None (occurrence: None)
  Receive Date: 20060118
  Receipt Date: 20050728
  Transmission Date: 20060701
  Serious: No
  Sender: FDA-Public Use
  Company Number: 2005001451

PATIENT
  Sex: Female
  Weight: 70.3075 kg

DRUGS (9)
  1. TARCEVA [Suspect]
     Indication: NON-SMALL CELL LUNG CANCER
     Dosage: 150 MG (QD) ORAL
     Route: 048
  2. GLUCOPHAGE [Concomitant]
  3. ALTICOR [Concomitant]
  4. PROCARDIA [Concomitant]
  5. LOPERAMIDE [Concomitant]
  6. COUMADIN [Concomitant]
  7. ZOLOFT [Concomitant]
  8. ACETAMINOPHEN [Concomitant]
  9. IBUPROFEN [Concomitant]

REACTIONS (7)
  - BACK PAIN [None]
  - DIARRHOEA [None]
  - DYSPHONIA [None]
  - ONYCHOMADESIS [None]
  - PIGMENTATION DISORDER [None]
  - RETINAL DISORDER [None]
  - RETINAL OEDEMA [None]
